FAERS Safety Report 11235354 (Version 1)
Quarter: 2015Q3

REPORT INFORMATION
  Report Type: Spontaneous
  Country: US (occurrence: US)
  Receive Date: 20150702
  Receipt Date: 20150702
  Transmission Date: 20151125
  Serious: No
  Sender: FDA-Public Use
  Company Number: US-MALLINCKRODT-T201501522

PATIENT
  Sex: Female

DRUGS (5)
  1. KETOROLAC [Suspect]
     Active Substance: KETOROLAC\KETOROLAC TROMETHAMINE
     Indication: SURGERY
     Route: 042
  2. MORPHINE [Suspect]
     Active Substance: MORPHINE
     Indication: SURGERY
     Route: 042
  3. OFIRMEV [Suspect]
     Active Substance: ACETAMINOPHEN
     Indication: SURGERY
     Dosage: UNK, SINGLE
     Route: 042
  4. LACTATED RINGERS [Suspect]
     Active Substance: CALCIUM CHLORIDE\POTASSIUM CHLORIDE\SODIUM CHLORIDE\SODIUM LACTATE
     Indication: SURGERY
     Route: 042
  5. DEXAMETHASONE. [Suspect]
     Active Substance: DEXAMETHASONE
     Indication: SURGERY
     Route: 042

REACTIONS (1)
  - Injection site extravasation [Unknown]
